FAERS Safety Report 7044554-8 (Version None)
Quarter: 2010Q4

REPORT INFORMATION
  Report Type: 
  Country: None (occurrence: None)
  Receive Date: 20101014
  Receipt Date: 20101013
  Transmission Date: 20110411
  Serious: Yes (Hospitalization, Other)
  Sender: FDA-Public Use
  Company Number: ES-SHIRE-SPV1-2010-01609

PATIENT
  Sex: Female
  Weight: 60 kg

DRUGS (1)
  1. FOSRENOL [Suspect]
     Indication: HYPERPHOSPHATAEMIA
     Dosage: UNK, 3X/DAY:TID
     Route: 048
     Dates: start: 20080101, end: 20091001

REACTIONS (2)
  - DIVERTICULITIS [None]
  - X-RAY ABNORMAL [None]
